FAERS Safety Report 9437413 (Version 1)
Quarter: 2013Q3

REPORT INFORMATION
  Report Type: Spontaneous
  Country: NL (occurrence: None)
  Receive Date: 20130731
  Receipt Date: 20130731
  Transmission Date: 20140515
  Serious: Yes (Hospitalization)
  Sender: FDA-Public Use
  Company Number: IMP_06770_2013

PATIENT
  Age: 62 Year
  Sex: Female

DRUGS (5)
  1. METFORMIN (METFORMIN) [Suspect]
     Indication: PRODUCT USED FOR UNKNOWN INDICATION
     Dosage: (DF)
  2. GLUCOSE [Suspect]
     Indication: HYPOGLYCAEMIA
     Dosage: 50% INTRAVENOUS BOLUS, UNTIL NOT CONTINUING
     Route: 040
  3. GLICLAZIDE (GLICLAZIDE) [Suspect]
     Dosage: C
  4. ENALAPRIL [Suspect]
     Dosage: (DF)
  5. ATORVASTATIN [Concomitant]

REACTIONS (10)
  - Lactic acidosis [None]
  - Nausea [None]
  - Vomiting [None]
  - Abdominal pain [None]
  - Diarrhoea [None]
  - Hypophagia [None]
  - Pallor [None]
  - Metabolic acidosis [None]
  - Hypoglycaemia [None]
  - Haemodialysis [None]
